FAERS Safety Report 25706196 (Version 1)
Quarter: 2025Q3

REPORT INFORMATION
  Report Type: Spontaneous
  Country: US (occurrence: US)
  Receive Date: 20250820
  Receipt Date: 20250820
  Transmission Date: 20251021
  Serious: No
  Sender: SPRINGWORKS THERAPEUTIC
  Company Number: US-SPRINGWORKS THERAPEUTICS-SW-002808

PATIENT
  Age: 28 Year
  Sex: Female

DRUGS (9)
  1. GOMEKLI [Suspect]
     Active Substance: MIRDAMETINIB
     Indication: Chemotherapy
     Dosage: 4 MILLIGRAM, BID 3 WEEKS ON, 1 WEEK OFF
     Route: 048
  2. GOMEKLI [Suspect]
     Active Substance: MIRDAMETINIB
     Indication: Ovarian cancer
     Dosage: 2 MILLIGRAM, BID 3 WEEKS ON, 1 WEEK OFF
     Route: 048
  3. GOMEKLI [Suspect]
     Active Substance: MIRDAMETINIB
     Indication: Product used for unknown indication
  4. TAMOXIFEN [Suspect]
     Active Substance: TAMOXIFEN
     Indication: Chemotherapy
  5. TAMOXIFEN [Suspect]
     Active Substance: TAMOXIFEN
     Indication: Ovarian cancer
  6. TAMOXIFEN [Suspect]
     Active Substance: TAMOXIFEN
     Indication: Product used for unknown indication
  7. TAMOXIFEN [Suspect]
     Active Substance: TAMOXIFEN
     Indication: Tumour excision
  8. LETROZOLE [Concomitant]
     Active Substance: LETROZOLE
     Indication: Product used for unknown indication
  9. TRAMETINIB [Concomitant]
     Active Substance: TRAMETINIB
     Indication: Product used for unknown indication

REACTIONS (3)
  - Rash [Unknown]
  - Drug ineffective for unapproved indication [Unknown]
  - Off label use [Unknown]
